FAERS Safety Report 7957275-1 (Version None)
Quarter: 2011Q4

REPORT INFORMATION
  Report Type: 
  Country: None (occurrence: None)
  Receive Date: 20111205
  Receipt Date: 20111122
  Transmission Date: 20120403
  Serious: Yes (Death)
  Sender: FDA-Public Use
  Company Number: US-SANOFI-AVENTIS-2011SA077851

PATIENT
  Sex: Male

DRUGS (2)
  1. AMBIEN [Suspect]
     Route: 065
  2. ZOLPIDEM TARTRATE [Suspect]
     Route: 065

REACTIONS (8)
  - SOMNOLENCE [None]
  - DEATH [None]
  - UNEVALUABLE EVENT [None]
  - PERIPHERAL COLDNESS [None]
  - DIZZINESS [None]
  - DIARRHOEA [None]
  - LIMB DISCOMFORT [None]
  - ECCHYMOSIS [None]
